FAERS Safety Report 13741370 (Version 1)
Quarter: 2017Q3

REPORT INFORMATION
  Report Type: Spontaneous
  Country: US (occurrence: US)
  Receive Date: 20170711
  Receipt Date: 20170711
  Transmission Date: 20171127
  Serious: Yes (Other)
  Sender: FDA-Public Use
  Company Number: None

PATIENT
  Age: 65 Year
  Sex: Female
  Weight: 56.7 kg

DRUGS (1)
  1. OCTREOTIDE 1MG/ML [Suspect]
     Active Substance: OCTREOTIDE
     Indication: DIARRHOEA
     Dosage: ?          OTHER DOSE:ML;?
     Route: 058
     Dates: start: 20170706, end: 20170710

REACTIONS (2)
  - Product quality issue [None]
  - Injection site pain [None]

NARRATIVE: CASE EVENT DATE: 20170710
